FAERS Safety Report 8419516-6 (Version None)
Quarter: 2012Q2

REPORT INFORMATION
  Report Type: 
  Country: None (occurrence: None)
  Receive Date: 20120607
  Receipt Date: 20110715
  Transmission Date: 20120825
  Serious: No
  Sender: FDA-Public Use
  Company Number: US-BRISTOL-MYERS SQUIBB COMPANY-15924160

PATIENT
  Age: 49 Year
  Sex: Female

DRUGS (1)
  1. SUSTIVA [Suspect]

REACTIONS (1)
  - RASH [None]
